FAERS Safety Report 17217817 (Version 5)
Quarter: 2021Q2

REPORT INFORMATION
  Report Type: Spontaneous
  Country: US (occurrence: US)
  Receive Date: 20191231
  Receipt Date: 20210510
  Transmission Date: 20210716
  Serious: Yes (Other)
  Sender: FDA-Public Use
  Company Number: US-GILEAD-2019-0444746

PATIENT
  Age: 63 Year
  Sex: Male

DRUGS (46)
  1. FARXIGA [Concomitant]
     Active Substance: DAPAGLIFLOZIN PROPANEDIOL
  2. LIDOCAINE. [Concomitant]
     Active Substance: LIDOCAINE
  3. GABAPENTIN. [Concomitant]
     Active Substance: GABAPENTIN
  4. ONDANSETRON [Concomitant]
     Active Substance: ONDANSETRON
  5. HYDROCODONE BITARTRATE AND ACETAMINOPHEN [Concomitant]
     Active Substance: ACETAMINOPHEN\HYDROCODONE BITARTRATE
  6. ABILIFY [Concomitant]
     Active Substance: ARIPIPRAZOLE
  7. SYMBICORT [Concomitant]
     Active Substance: BUDESONIDE\FORMOTEROL FUMARATE DIHYDRATE
  8. MONTELUKAST [Concomitant]
     Active Substance: MONTELUKAST SODIUM
  9. METOPROLOL SUCCINATE. [Concomitant]
     Active Substance: METOPROLOL SUCCINATE
  10. VENTOLIN [Concomitant]
     Active Substance: ALBUTEROL SULFATE
  11. CARISOPRODOL. [Concomitant]
     Active Substance: CARISOPRODOL
  12. TRUVADA [Suspect]
     Active Substance: EMTRICITABINE\TENOFOVIR DISOPROXIL FUMARATE
     Indication: HIV INFECTION
     Dosage: UNK
     Route: 065
     Dates: start: 201306, end: 20180224
  13. IRBESARTAN. [Concomitant]
     Active Substance: IRBESARTAN
  14. BUPROPION HYDROCHLORIDE XL [Concomitant]
     Active Substance: BUPROPION HYDROCHLORIDE
  15. LYRICA [Concomitant]
     Active Substance: PREGABALIN
  16. AZITHROMYCIN ANHYDROUS. [Concomitant]
     Active Substance: AZITHROMYCIN ANHYDROUS
  17. HYDROMORPHONE [Concomitant]
     Active Substance: HYDROMORPHONE
  18. LEVITRA [Concomitant]
     Active Substance: VARDENAFIL HYDROCHLORIDE
  19. METHYLPREDNISOLONE. [Concomitant]
     Active Substance: METHYLPREDNISOLONE
  20. ULORIC [Concomitant]
     Active Substance: FEBUXOSTAT
  21. METFORMIN [Concomitant]
     Active Substance: METFORMIN HYDROCHLORIDE
  22. SPIRIVA [Concomitant]
     Active Substance: TIOTROPIUM BROMIDE MONOHYDRATE
  23. FORTESTA [Concomitant]
     Active Substance: TESTOSTERONE
  24. DALIRESP [Concomitant]
     Active Substance: ROFLUMILAST
  25. FLUOXETINE [Concomitant]
     Active Substance: FLUOXETINE HYDROCHLORIDE
  26. PREDNISONE. [Concomitant]
     Active Substance: PREDNISONE
  27. KLOR?CON [Concomitant]
     Active Substance: POTASSIUM CHLORIDE
  28. FLUZONE [INFLUENZA VACCINE] [Concomitant]
  29. XIGDUO XR [Concomitant]
     Active Substance: DAPAGLIFLOZIN PROPANEDIOL\METFORMIN HYDROCHLORIDE
  30. CRESTOR [Concomitant]
     Active Substance: ROSUVASTATIN CALCIUM
  31. NASONEX [Concomitant]
     Active Substance: MOMETASONE FUROATE
  32. TRUVADA [Suspect]
     Active Substance: EMTRICITABINE\TENOFOVIR DISOPROXIL FUMARATE
     Indication: PROPHYLAXIS AGAINST HIV INFECTION
     Dosage: 1 DOSAGE FORM, QD
     Route: 048
     Dates: start: 201306, end: 201711
  33. ERYTHROMYCIN. [Concomitant]
     Active Substance: ERYTHROMYCIN
  34. DIAZEPAM. [Concomitant]
     Active Substance: DIAZEPAM
  35. LEVOFLOXACIN. [Concomitant]
     Active Substance: LEVOFLOXACIN
  36. TRIAMCINOLONE [Concomitant]
     Active Substance: TRIAMCINOLONE
  37. BACLOFEN. [Concomitant]
     Active Substance: BACLOFEN
  38. VALACYCLOVIR [Concomitant]
     Active Substance: VALACYCLOVIR HYDROCHLORIDE
  39. IBUPROFEN. [Concomitant]
     Active Substance: IBUPROFEN
  40. ASPIRIN 81 [Concomitant]
     Active Substance: ASPIRIN
  41. PERMETHRIN. [Concomitant]
     Active Substance: PERMETHRIN
  42. VASCEPA [Concomitant]
     Active Substance: ICOSAPENT ETHYL
  43. ATORVASTATIN [Concomitant]
     Active Substance: ATORVASTATIN
  44. ZOLPIDEM [Concomitant]
     Active Substance: ZOLPIDEM TARTRATE
  45. HYDROCHLOROTHIAZIDE. [Concomitant]
     Active Substance: HYDROCHLOROTHIAZIDE
  46. CEFDINIR. [Concomitant]
     Active Substance: CEFDINIR

REACTIONS (12)
  - Multiple fractures [Unknown]
  - Anhedonia [Unknown]
  - Hip arthroplasty [Not Recovered/Not Resolved]
  - Chronic kidney disease [Recovered/Resolved]
  - Emotional distress [Unknown]
  - Bone density decreased [Unknown]
  - Osteonecrosis [Not Recovered/Not Resolved]
  - Economic problem [Unknown]
  - Anxiety [Unknown]
  - Renal impairment [Unknown]
  - Nephropathy [Recovered/Resolved]
  - Pain [Unknown]

NARRATIVE: CASE EVENT DATE: 201506
